FAERS Safety Report 12454473 (Version 1)
Quarter: 2016Q2

REPORT INFORMATION
  Report Type: Spontaneous
  Country: US (occurrence: None)
  Receive Date: 20160609
  Receipt Date: 20160609
  Transmission Date: 20160815
  Serious: Yes (Disabling)
  Sender: FDA-Public Use
  Company Number: None

PATIENT
  Age: 61 Year
  Sex: Female
  Weight: 74.39 kg

DRUGS (1)
  1. CIPROFLOXACIN. [Suspect]
     Active Substance: CIPROFLOXACIN

REACTIONS (10)
  - Back disorder [None]
  - Ligament sprain [None]
  - Back pain [None]
  - Fatigue [None]
  - Muscle strain [None]
  - Muscle rupture [None]
  - Muscle disorder [None]
  - Tendon rupture [None]
  - Pain [None]
  - Myalgia [None]
